FAERS Safety Report 13829206 (Version 1)
Quarter: 2017Q3

REPORT INFORMATION
  Report Type: Spontaneous
  Country: US (occurrence: US)
  Receive Date: 20170802
  Receipt Date: 20170802
  Transmission Date: 20171127
  Serious: No
  Sender: FDA-Public Use
  Company Number: None

PATIENT
  Age: 63 Year
  Sex: Female

DRUGS (1)
  1. PROLIA [Suspect]
     Active Substance: DENOSUMAB
     Indication: OSTEOARTHRITIS
     Dosage: 60MG/ML EVERY 6 MONTHS SUBCUTANEOUSLY
     Route: 058
     Dates: start: 20170119

REACTIONS (1)
  - Rash [None]

NARRATIVE: CASE EVENT DATE: 20170724
